FAERS Safety Report 6198968-9 (Version None)
Quarter: 2009Q2

REPORT INFORMATION
  Report Type: 
  Country: None (occurrence: None)
  Receive Date: 20090522
  Receipt Date: 20090514
  Transmission Date: 20091009
  Serious: Yes (Other)
  Sender: FDA-Public Use
  Company Number: CO-TEVA-195092ISR

PATIENT
  Age: 66 Year
  Sex: Female

DRUGS (2)
  1. AMOXICILLIN AND CLAVULANATE POTASSIUM [Suspect]
     Route: 048
     Dates: start: 20090401
  2. PIROXICAM [Concomitant]

REACTIONS (3)
  - AMNESIA [None]
  - GAIT DISTURBANCE [None]
  - SLEEP DISORDER [None]
